FAERS Safety Report 10249241 (Version 3)
Quarter: 2014Q3

REPORT INFORMATION
  Report Type: Report from Study
  Country: JP (occurrence: JP)
  Receive Date: 20140620
  Receipt Date: 20140702
  Transmission Date: 20150326
  Serious: Yes (Other)
  Sender: FDA-Public Use
  Company Number: JP-SHIONOGI, INC-2014000574

PATIENT
  Age: 6 Year
  Sex: Female
  Weight: 17.7 kg

DRUGS (2)
  1. CLINDAMYCIN [Concomitant]
     Active Substance: CLINDAMYCIN\CLINDAMYCIN PHOSPHATE
     Indication: ABDOMINAL ABSCESS
     Dosage: 1.6 ML, TID
     Route: 065
     Dates: start: 20140312, end: 20140318
  2. DORIPENEM [Suspect]
     Active Substance: DORIPENEM
     Indication: ABDOMINAL ABSCESS
     Dosage: 0.5 G, TID
     Route: 041
     Dates: start: 20140312, end: 20140320

REACTIONS (1)
  - Platelet count increased [Recovering/Resolving]

NARRATIVE: CASE EVENT DATE: 20140320
